FAERS Safety Report 24422105 (Version 1)
Quarter: 2024Q4

REPORT INFORMATION
  Report Type: Spontaneous
  Country: US (occurrence: US)
  Receive Date: 20241010
  Receipt Date: 20241010
  Transmission Date: 20250115
  Serious: Yes (Life-Threatening, Hospitalization)
  Sender: HIKMA
  Company Number: US-HIKMA PHARMACEUTICALS USA INC.-US-H14001-24-09255

PATIENT
  Age: 39 Year
  Sex: Female

DRUGS (1)
  1. FENTANYL [Suspect]
     Active Substance: FENTANYL
     Indication: Product used for unknown indication
     Dosage: UNK
     Route: 065

REACTIONS (9)
  - Staphylococcal infection [Recovered/Resolved]
  - Pneumonia [Recovering/Resolving]
  - Acute respiratory distress syndrome [Recovering/Resolving]
  - Traumatic lung injury [Recovering/Resolving]
  - Vomiting [Recovering/Resolving]
  - Respiratory failure [Recovering/Resolving]
  - Mental status changes [Recovering/Resolving]
  - Pneumonitis aspiration [Recovering/Resolving]
  - Adenovirus infection [Recovered/Resolved]
